FAERS Safety Report 11696833 (Version 1)
Quarter: 2015Q4

REPORT INFORMATION
  Report Type: Spontaneous
  Country: US (occurrence: US)
  Receive Date: 20151104
  Receipt Date: 20151104
  Transmission Date: 20160304
  Serious: No
  Sender: FDA-Public Use
  Company Number: US-PERRIGO-15US000705

PATIENT
  Age: 76 Year
  Sex: Male
  Weight: 61.68 kg

DRUGS (4)
  1. MESALAMINE RX 66.667 MG/ML 2N9 [Suspect]
     Active Substance: MESALAMINE
     Dosage: APPROXIMATELY 8.0 G, QD AT BEDTIME
     Route: 054
     Dates: start: 20150110, end: 20150111
  2. MESALAMINE RX 66.667 MG/ML 2N9 [Suspect]
     Active Substance: MESALAMINE
     Dosage: 4.0 G, QD AT BEDTIME
     Route: 054
     Dates: start: 20150112, end: 20150120
  3. MESALAMINE RX 66.667 MG/ML 2N9 [Suspect]
     Active Substance: MESALAMINE
     Indication: COLITIS
     Dosage: 4.0 G, QD AT BEDTIME
     Route: 054
     Dates: start: 20150108, end: 20150109
  4. MESALAMINE RX 66.667 MG/ML 2N9 [Suspect]
     Active Substance: MESALAMINE
     Dosage: APPROXIMATELY 2.0 G TWICE IN 30 MINUTES, AT BEDTIME
     Route: 054
     Dates: start: 20150121, end: 20150121

REACTIONS (3)
  - Wrong technique in product usage process [Recovered/Resolved]
  - Incorrect dose administered [Recovered/Resolved]
  - No adverse event [Recovered/Resolved]

NARRATIVE: CASE EVENT DATE: 20150110
